FAERS Safety Report 7424971-4 (Version None)
Quarter: 2011Q2

REPORT INFORMATION
  Report Type: 
  Country: None (occurrence: None)
  Receive Date: 20110419
  Receipt Date: 20110406
  Transmission Date: 20111010
  Serious: Yes (Other)
  Sender: FDA-Public Use
  Company Number: RU-BAYER-2011-029995

PATIENT
  Age: 32 Year
  Sex: Female

DRUGS (2)
  1. YARINA [Suspect]
     Indication: CONTRACEPTION
     Dosage: 1 DF, ONCE
     Route: 048
     Dates: start: 20100901, end: 20100921
  2. ASPIRIN [Concomitant]
     Dosage: 50 MG, UNK

REACTIONS (8)
  - PAIN IN EXTREMITY [None]
  - DIZZINESS [None]
  - HEADACHE [None]
  - OEDEMA PERIPHERAL [None]
  - VOMITING [None]
  - FATIGUE [None]
  - NAUSEA [None]
  - VEIN DISORDER [None]
